FAERS Safety Report 13007096 (Version 6)
Quarter: 2018Q2

REPORT INFORMATION
  Report Type: Spontaneous
  Country: IT (occurrence: IT)
  Receive Date: 20161207
  Receipt Date: 20180416
  Transmission Date: 20180711
  Serious: Yes (Death, Other)
  Sender: FDA-Public Use
  Company Number: IT-PFIZER INC-2922950

PATIENT
  Age: 39 Year
  Sex: Male

DRUGS (5)
  1. IRINOTECAN HCL [Suspect]
     Active Substance: IRINOTECAN HYDROCHLORIDE
     Indication: EWING^S SARCOMA RECURRENT
     Dosage: 75 MG/M2, CYCLIC (ON DAY TWO OF A 28 DAY CYCLE)
     Dates: start: 201310, end: 201402
  2. IRINOTECAN HCL [Suspect]
     Active Substance: IRINOTECAN HYDROCHLORIDE
     Dosage: 75 MG/M2, CYCLIC (ON DAYS TWO AND FOUR OF A 28 DAY CYCLE)
     Dates: start: 201402
  3. YONDELIS [Suspect]
     Active Substance: TRABECTEDIN
     Indication: EWING^S SARCOMA RECURRENT
     Dosage: 1 MG/M2, CYCLIC (AS A 24-HOUR INFUSION ON DAY ONE OF A 28 DAY CYCLE)
     Route: 042
     Dates: start: 201307, end: 201407
  4. DEXAMETHASONE. [Concomitant]
     Active Substance: DEXAMETHASONE
     Dosage: 20 MG/M2, UNK (30 MINUTES BEFORE TRABECTED IN INFUSION)
  5. G-CSF [Concomitant]
     Active Substance: GRANULOCYTE COLONY-STIMULATING FACTOR NOS
     Dosage: UNK

REACTIONS (6)
  - Product use issue [Fatal]
  - Haematotoxicity [Recovered/Resolved]
  - Hepatotoxicity [Recovered/Resolved]
  - Cerebrovascular accident [Fatal]
  - Diarrhoea [Recovered/Resolved]
  - Transaminases increased [Unknown]
